FAERS Safety Report 9121495 (Version 3)
Quarter: 2013Q1

REPORT INFORMATION
  Report Type: Spontaneous
  Country: JP (occurrence: JP)
  Receive Date: 20130227
  Receipt Date: 20130319
  Transmission Date: 20140127
  Serious: Yes (Death, Hospitalization)
  Sender: FDA-Public Use
  Company Number: JP-009507513-1302JPN011060

PATIENT
  Age: 67 Year
  Sex: Male
  Weight: 53 kg

DRUGS (22)
  1. PEGINTRON [Suspect]
     Indication: CHRONIC HEPATITIS C
     Dosage: 1.5 MICROGRAM PER KILOGRAM, QW, DAILY DOSE UNKNOWN
     Route: 058
     Dates: start: 20130109, end: 20130117
  2. PEGINTRON [Suspect]
     Dosage: 0.7 MICROGRAM PER KILOGRAM, QW, DAILY DOSE UNKNOWN
     Route: 058
     Dates: start: 20130118, end: 20130131
  3. PEGINTRON [Suspect]
     Dosage: 0.9 MICROGRAM PER KILOGRAM, QW, DAILY DOSE UNKNOWN
     Route: 058
     Dates: start: 20130201, end: 20130207
  4. PEGINTRON [Suspect]
     Dosage: 0.7 MICROGRAM PER KILOGRAM, QW, DAILY DOSE UNKNOWN
     Route: 058
     Dates: start: 20130208, end: 20130208
  5. REBETOL [Suspect]
     Indication: CHRONIC HEPATITIS C
     Dosage: 600 MG, QD
     Route: 048
     Dates: start: 20130109, end: 20130113
  6. REBETOL [Suspect]
     Dosage: 200 MG, QD
     Route: 048
     Dates: start: 20130114, end: 20130123
  7. REBETOL [Suspect]
     Dosage: 200 MG, QD
     Route: 048
     Dates: start: 20130202, end: 20130209
  8. TELAVIC [Suspect]
     Indication: CHRONIC HEPATITIS C
     Dosage: 1500 MG, QD
     Route: 048
     Dates: start: 20130109, end: 20130112
  9. TELAVIC [Suspect]
     Dosage: 1000 MG, QD
     Route: 048
     Dates: start: 20130113, end: 20130114
  10. TELAVIC [Suspect]
     Dosage: 500MG, QD
     Route: 048
     Dates: start: 20130115, end: 20130128
  11. TELAVIC [Suspect]
     Dosage: 750 MG, QD
     Route: 048
     Dates: start: 20130129, end: 20130207
  12. TELAVIC [Suspect]
     Dosage: 500MG, QD
     Route: 048
     Dates: start: 20130208, end: 20130209
  13. RYTHMODAN [Suspect]
     Dosage: 300 MG, QD, FORMULATION: POR
     Route: 048
  14. LISPINE R [Suspect]
     Dosage: 300 MG, QD
     Route: 048
     Dates: end: 20130209
  15. LASIX (FUROSEMIDE) [Suspect]
     Dosage: 20 MG, QD
     Route: 048
     Dates: start: 20130119, end: 20130209
  16. ADALAT CR [Concomitant]
     Dosage: 40 MG, QD
     Route: 048
     Dates: end: 20130209
  17. BIOFERMIN (BACILLUS SUBTILIS (+) LACTOBACILLUS ACIDOPHILUS (+) STREPTO [Concomitant]
     Dosage: 3 DF, QD
     Route: 048
     Dates: end: 20130209
  18. MECOBAMIDE [Concomitant]
     Dosage: 1500 MICROGRAM, QD
     Route: 048
     Dates: end: 20130209
  19. SENNOSIDES [Concomitant]
     Dosage: 36 MG, QD
     Route: 048
     Dates: end: 20130209
  20. HARNAL [Concomitant]
     Dosage: 0.2 MG, QD
     Route: 048
     Dates: end: 20130209
  21. LOXONIN [Concomitant]
     Dosage: 60 MG, QD
     Route: 048
     Dates: end: 20130209
  22. MUCOSTA [Concomitant]
     Dosage: 100 MG/DAY, AS NEEDED, DAILY DOSE UNKNOWN
     Route: 048
     Dates: end: 20130209

REACTIONS (5)
  - Arrhythmia [Fatal]
  - Malaise [Fatal]
  - Decreased appetite [Not Recovered/Not Resolved]
  - Vomiting [Not Recovered/Not Resolved]
  - Nausea [Not Recovered/Not Resolved]
